FAERS Safety Report 8132157-3 (Version None)
Quarter: 2012Q1

REPORT INFORMATION
  Report Type: 
  Country: None (occurrence: None)
  Receive Date: 20120213
  Receipt Date: 20120209
  Transmission Date: 20120608
  Serious: No
  Sender: FDA-Public Use
  Company Number: US-PFIZER INC-2012036267

PATIENT
  Sex: Female
  Weight: 58.957 kg

DRUGS (1)
  1. GEODON [Suspect]
     Indication: TIC
     Dosage: 10 MG, 1X/DAY
     Route: 048
     Dates: start: 20080401, end: 20100101

REACTIONS (3)
  - MOOD SWINGS [None]
  - TIC [None]
  - SOMNOLENCE [None]
